FAERS Safety Report 8791923 (Version 2)
Quarter: 2012Q4

REPORT INFORMATION
  Report Type: 
  Country: US (occurrence: US)
  Receive Date: 20120918
  Receipt Date: 20121009
  Transmission Date: 20130627
  Serious: Yes (Hospitalization)
  Sender: FDA-Public Use
  Company Number: US-B.I. PHARMACEUTICALS,INC./RIDGEFIELD-2012-BP-22605BP

PATIENT
  Age: 64 None
  Sex: Female
  Weight: 60 kg

DRUGS (5)
  1. SPIRIVA [Suspect]
     Indication: DYSPNOEA
     Dosage: 18 mcg
     Route: 048
     Dates: start: 2007
  2. DEXAMETHASONE [Concomitant]
     Dates: start: 201207
  3. NEUPOGEN [Concomitant]
     Route: 058
     Dates: start: 201207
  4. SYMBICORT [Concomitant]
     Indication: DYSPNOEA
     Route: 055
     Dates: start: 2007
  5. ONDANSETRON [Concomitant]
     Indication: NAUSEA
     Route: 048
     Dates: start: 201207

REACTIONS (6)
  - Breast cancer [Not Recovered/Not Resolved]
  - Asthenia [Recovered/Resolved]
  - Dyspnoea [Recovered/Resolved]
  - Nausea [Recovered/Resolved]
  - Product quality issue [Recovered/Resolved]
  - Product quality issue [Unknown]
